FAERS Safety Report 23050797 (Version 1)
Quarter: 2023Q4

REPORT INFORMATION
  Report Type: Spontaneous
  Country: US (occurrence: US)
  Receive Date: 20231010
  Receipt Date: 20231010
  Transmission Date: 20240109
  Serious: Yes (Death, Other)
  Sender: FDA-Public Use
  Company Number: US-AMGEN-USASP2023177401

PATIENT

DRUGS (6)
  1. BEVACIZUMAB [Suspect]
     Active Substance: BEVACIZUMAB
     Indication: Endometrial cancer metastatic
     Dosage: 50 MILLIGRAM/M2 (STARTING DOSE LEVEL)
     Route: 042
  2. BEVACIZUMAB [Suspect]
     Active Substance: BEVACIZUMAB
     Indication: Ovarian cancer metastatic
     Dosage: 60 MILLIGRAM/M2 (HIGHER DOSE LEVELS)
     Route: 042
  3. BEVACIZUMAB [Suspect]
     Active Substance: BEVACIZUMAB
     Indication: Cervix carcinoma
     Dosage: 70 MILLIGRAM/M2 (DL-3)
     Route: 042
  4. PACLITAXEL [Concomitant]
     Active Substance: PACLITAXEL
     Dosage: 125 MILLIGRAM/M2 (STARTING DOSE LEVEL )
     Route: 042
  5. PACLITAXEL [Concomitant]
     Active Substance: PACLITAXEL
     Dosage: 150 MILLIGRAM/M2 (HIGHER DOSE LEVELS)
     Route: 042
  6. PACLITAXEL [Concomitant]
     Active Substance: PACLITAXEL
     Dosage: 175 MILLIGRAM/M2  (DL-3)
     Route: 042

REACTIONS (14)
  - Death [Fatal]
  - Lymphopenia [Unknown]
  - Neutropenia [Unknown]
  - Leukopenia [Unknown]
  - Hyponatraemia [Unknown]
  - Anaemia [Unknown]
  - Endometrial cancer metastatic [Unknown]
  - Ovarian cancer metastatic [Unknown]
  - Neurotoxicity [Unknown]
  - Therapy partial responder [Unknown]
  - Adverse reaction [Unknown]
  - Blood creatinine increased [Unknown]
  - Ill-defined disorder [Unknown]
  - Fatigue [Unknown]
